FAERS Safety Report 15089178 (Version 2)
Quarter: 2018Q4

REPORT INFORMATION
  Report Type: Spontaneous
  Country: US (occurrence: US)
  Receive Date: 20180629
  Receipt Date: 20181217
  Transmission Date: 20190204
  Serious: Yes (Other)
  Sender: FDA-Public Use
  Company Number: US-SA-2018SA168046

PATIENT
  Age: 60 Year
  Sex: Female
  Weight: 68 kg

DRUGS (11)
  1. DOCETAXEL. [Suspect]
     Active Substance: DOCETAXEL
     Dosage: UNK
     Route: 042
     Dates: start: 20160613, end: 20160613
  2. DOCETAXEL. [Suspect]
     Active Substance: DOCETAXEL
     Indication: BREAST CANCER FEMALE
     Dosage: 128 MG, Q3W
     Route: 042
     Dates: start: 20160331, end: 20160331
  3. HYDRALAZINE [Concomitant]
     Active Substance: HYDRALAZINE HYDROCHLORIDE
     Dosage: UNK
     Dates: start: 2010
  4. NEOSAR [Concomitant]
     Active Substance: CYCLOPHOSPHAMIDE
  5. SIMVASTATIN. [Concomitant]
     Active Substance: SIMVASTATIN
     Dosage: UNK
     Dates: start: 2010
  6. ELLENCE [Concomitant]
     Active Substance: EPIRUBICIN HYDROCHLORIDE
  7. NEULASTA [Concomitant]
     Active Substance: PEGFILGRASTIM
  8. AMLODIPINE [Concomitant]
     Active Substance: AMLODIPINE BESYLATE
     Dosage: UNK
     Dates: start: 2010
  9. METOPROLOL TARTRATE. [Concomitant]
     Active Substance: METOPROLOL TARTRATE
     Dosage: UNK
     Dates: start: 2010
  10. FLUOROURACIL. [Concomitant]
     Active Substance: FLUOROURACIL
  11. GABAPENTIN. [Concomitant]
     Active Substance: GABAPENTIN
     Dosage: UNK
     Dates: start: 2010

REACTIONS (2)
  - Alopecia [Recovering/Resolving]
  - Psychological trauma [Unknown]

NARRATIVE: CASE EVENT DATE: 201612
